FAERS Safety Report 25459390 (Version 1)
Quarter: 2025Q2

REPORT INFORMATION
  Report Type: Report from Study
  Country: MX (occurrence: MX)
  Receive Date: 20250620
  Receipt Date: 20250620
  Transmission Date: 20250716
  Serious: Yes (Hospitalization)
  Sender: ROCHE
  Company Number: MX-ROCHE-10000314681

PATIENT
  Age: 68 Year
  Sex: Female

DRUGS (1)
  1. TOCILIZUMAB [Suspect]
     Active Substance: TOCILIZUMAB
     Indication: Rheumatoid arthritis
     Route: 058
     Dates: start: 20240703

REACTIONS (6)
  - Pain in extremity [Recovered/Resolved]
  - Haematoma [Recovered/Resolved]
  - Loss of consciousness [Recovered/Resolved]
  - Meningitis [Recovering/Resolving]
  - Cerebral infarction [Recovering/Resolving]
  - Myocardial infarction [Recovering/Resolving]

NARRATIVE: CASE EVENT DATE: 20250429
